FAERS Safety Report 21191036 (Version 2)
Quarter: 2023Q2

REPORT INFORMATION
  Report Type: Report from Study
  Country: CA (occurrence: CA)
  Receive Date: 20220809
  Receipt Date: 20230619
  Transmission Date: 20230722
  Serious: Yes (Life-Threatening, Other)
  Sender: FDA-Public Use
  Company Number: CA-OTSUKA-2022_039940

PATIENT
  Sex: Male

DRUGS (1)
  1. CEDAZURIDINE\DECITABINE [Suspect]
     Active Substance: CEDAZURIDINE\DECITABINE
     Indication: Chronic myelomonocytic leukaemia
     Dosage: 5 PILLS EVERY 28 DAYS
     Route: 065
     Dates: start: 20220215

REACTIONS (4)
  - Terminal state [Unknown]
  - Blood product transfusion dependent [Unknown]
  - Eastern Cooperative Oncology Group performance status worsened [Unknown]
  - General physical health deterioration [Unknown]
